FAERS Safety Report 23093837 (Version 1)
Quarter: 2023Q4

REPORT INFORMATION
  Report Type: Spontaneous
  Country: US (occurrence: None)
  Receive Date: 20231023
  Receipt Date: 20231023
  Transmission Date: 20240109
  Serious: No
  Sender: FDA-Public Use
  Company Number: 2023A230071

PATIENT

DRUGS (1)
  1. SYMBICORT [Suspect]
     Active Substance: BUDESONIDE\FORMOTEROL FUMARATE DIHYDRATE
     Dosage: 160 UG
     Route: 055
     Dates: start: 202307

REACTIONS (10)
  - Insomnia [Unknown]
  - Product use issue [Unknown]
  - Mouth ulceration [Unknown]
  - Aphthous ulcer [Unknown]
  - Cough [Unknown]
  - Feeling abnormal [Unknown]
  - Hypersensitivity [Unknown]
  - Productive cough [Unknown]
  - Tongue ulceration [Unknown]
  - Lip ulceration [Unknown]
